FAERS Safety Report 8158695-5 (Version None)
Quarter: 2012Q1

REPORT INFORMATION
  Report Type: 
  Country: None (occurrence: None)
  Receive Date: 20120223
  Receipt Date: 20120214
  Transmission Date: 20120608
  Serious: Yes (Hospitalization)
  Sender: FDA-Public Use
  Company Number: US-BAYER-2011-042266

PATIENT
  Age: 33 Year
  Sex: Female
  Weight: 58.957 kg

DRUGS (3)
  1. NIFOREX [Concomitant]
  2. DIET PILLS [Concomitant]
     Dosage: UNK
     Dates: start: 20020601
  3. YASMIN [Suspect]
     Indication: CONTRACEPTION
     Dosage: UNK
     Dates: start: 20020508, end: 20020619

REACTIONS (19)
  - DIZZINESS [None]
  - ANXIETY [None]
  - MENTAL IMPAIRMENT [None]
  - CAROTID ARTERY OCCLUSION [None]
  - VISUAL FIELD DEFECT [None]
  - EMOTIONAL DISTRESS [None]
  - TRANSIENT ISCHAEMIC ATTACK [None]
  - ISCHAEMIC CEREBRAL INFARCTION [None]
  - MEMORY IMPAIRMENT [None]
  - CONFUSIONAL STATE [None]
  - GENERAL PHYSICAL HEALTH DETERIORATION [None]
  - DEPRESSION [None]
  - COMMUNICATION DISORDER [None]
  - INJURY [None]
  - BALANCE DISORDER [None]
  - VISION BLURRED [None]
  - NAUSEA [None]
  - SPEECH DISORDER [None]
  - PAIN [None]
